FAERS Safety Report 20578620 (Version 1)
Quarter: 2022Q1

REPORT INFORMATION
  Report Type: Spontaneous
  Country: US (occurrence: US)
  Receive Date: 20220310
  Receipt Date: 20220310
  Transmission Date: 20220424
  Serious: No
  Sender: FDA-Public Use
  Company Number: US-ARISGlobal LLC-19-1606-00376

PATIENT

DRUGS (4)
  1. XERMELO [Suspect]
     Active Substance: TELOTRISTAT ETHYL
     Indication: Carcinoid syndrome
     Dosage: 250 MG, TID
     Route: 048
     Dates: start: 20181013
  2. XERMELO [Suspect]
     Active Substance: TELOTRISTAT ETHYL
     Dosage: 250 MG, BID (2 TABLETS DAILY INSTEAD OF 3)
     Route: 048
     Dates: start: 20190910
  3. XERMELO [Suspect]
     Active Substance: TELOTRISTAT ETHYL
     Dosage: 250 MG, TID (TAKE 1 TABLET BY MOUTH 3 TIMES A DAY)
     Route: 048
  4. SOMATULINE INJ [Concomitant]
     Indication: Product used for unknown indication
     Dosage: EVERY 4 WEEKS
     Route: 065

REACTIONS (1)
  - Constipation [Recovering/Resolving]
